FAERS Safety Report 8135469-2 (Version None)
Quarter: 2012Q1

REPORT INFORMATION
  Report Type: 
  Country: None (occurrence: None)
  Receive Date: 20120214
  Receipt Date: 20101114
  Transmission Date: 20120608
  Serious: Yes (Other)
  Sender: FDA-Public Use
  Company Number: US-ROCHE-1031866

PATIENT

DRUGS (3)
  1. TEMOZOLOMIDE [Suspect]
     Indication: GLIOBLASTOMA MULTIFORME
  2. IRINOTECAN HCL [Suspect]
     Indication: GLIOBLASTOMA MULTIFORME
  3. AVASTIN [Suspect]
     Indication: GLIOBLASTOMA MULTIFORME

REACTIONS (7)
  - HAEMORRHAGE [None]
  - EMBOLISM VENOUS [None]
  - WOUND DEHISCENCE [None]
  - HAEMATOTOXICITY [None]
  - INTESTINAL PERFORATION [None]
  - METASTASIS [None]
  - PNEUMOCYSTIS JIROVECI INFECTION [None]
